FAERS Safety Report 25217030 (Version 1)
Quarter: 2025Q2

REPORT INFORMATION
  Report Type: Spontaneous
  Country: RU (occurrence: RU)
  Receive Date: 20250419
  Receipt Date: 20250419
  Transmission Date: 20250717
  Serious: Yes (Hospitalization)
  Sender: HETERO
  Company Number: RU-AMAROX PHARMA-HET2025RU01933

PATIENT
  Sex: Female

DRUGS (1)
  1. LAMIVUDINE [Suspect]
     Active Substance: LAMIVUDINE
     Indication: Suicide attempt
     Route: 048
     Dates: start: 20250407, end: 20250407

REACTIONS (3)
  - Intentional overdose [Unknown]
  - Nausea [Unknown]
  - Off label use [Unknown]

NARRATIVE: CASE EVENT DATE: 20250407
